FAERS Safety Report 8790764 (Version 1)
Quarter: 2012Q4

REPORT INFORMATION
  Report Type: Spontaneous
  Country: CO (occurrence: None)
  Receive Date: 20120907
  Receipt Date: 20120907
  Transmission Date: 20130627
  Serious: Yes (Hospitalization)
  Sender: FDA-Public Use
  Company Number: 2012-3957

PATIENT
  Age: 6 Year
  Sex: Female

DRUGS (2)
  1. SOMATULINE DEPOT [Suspect]
     Indication: GROWTH ACCELERATED
     Route: 058
     Dates: start: 20120314, end: 20120813
  2. SOMATULINE DEPOT [Suspect]
     Indication: DRUG USE FOR UNAPPROVED INDICATION
     Route: 058
     Dates: start: 20120314, end: 20120813

REACTIONS (6)
  - Leukopenia [None]
  - Pyrexia [None]
  - Thrombocytopenia [None]
  - Hepatic enzyme increased [None]
  - Aspartate aminotransferase increased [None]
  - Alanine aminotransferase increased [None]
